FAERS Safety Report 4752980-2 (Version None)
Quarter: 2005Q3

REPORT INFORMATION
  Report Type: 
  Country: None (occurrence: None)
  Receive Date: 20050825
  Receipt Date: 20050804
  Transmission Date: 20060218
  Serious: Yes (Hospitalization, Other)
  Sender: FDA-Public Use
  Company Number: USA0508104562

PATIENT
  Age: 61 Year
  Sex: Female

DRUGS (2)
  1. GEMZAR [Suspect]
     Indication: BILE DUCT CANCER
     Dates: start: 20050101
  2. XELODA [Concomitant]

REACTIONS (2)
  - PO2 DECREASED [None]
  - PULMONARY TOXICITY [None]
